FAERS Safety Report 15232504 (Version 4)
Quarter: 2018Q4

REPORT INFORMATION
  Report Type: Spontaneous
  Country: US (occurrence: US)
  Receive Date: 20180802
  Receipt Date: 20181206
  Transmission Date: 20190204
  Serious: Yes (Hospitalization, Other)
  Sender: FDA-Public Use
  Company Number: US-BAYER-2018-140074

PATIENT
  Age: 38 Year
  Sex: Female
  Weight: 68 kg

DRUGS (9)
  1. OXYCODON [Concomitant]
     Active Substance: OXYCODONE
     Dosage: UNK
  2. AMBRISENTAN [Suspect]
     Active Substance: AMBRISENTAN
     Indication: PULMONARY HYPERTENSION
     Dosage: 5 MG, QD
     Route: 065
  3. UPTRAVI [Suspect]
     Active Substance: SELEXIPAG
     Indication: PULMONARY HYPERTENSION
     Dosage: 2000 ?G, BID
     Route: 065
     Dates: start: 20160202, end: 20181009
  4. IRON [Concomitant]
     Active Substance: IRON
     Dosage: UNK
  5. ADEMPAS [Suspect]
     Active Substance: RIOCIGUAT
     Indication: PULMONARY HYPERTENSION
     Dosage: EVERY TWO TO THREE HOURS INSTEAD OF EVERY SIX TO EIGHT HOURS
  6. AMBRISENTAN [Suspect]
     Active Substance: AMBRISENTAN
     Indication: PULMONARY HYPERTENSION
     Dosage: 10 MG, QD
     Route: 065
     Dates: start: 20160613
  7. ADEMPAS [Suspect]
     Active Substance: RIOCIGUAT
     Indication: PULMONARY HYPERTENSION
     Dosage: 2.5 MG, TID
     Route: 065
     Dates: start: 20151107
  8. REMODULIN [Suspect]
     Active Substance: TREPROSTINIL
     Indication: PULMONARY ARTERIAL HYPERTENSION
     Dosage: 0.039 ?G/KG
     Route: 058
     Dates: start: 20180925
  9. UPTRAVI [Suspect]
     Active Substance: SELEXIPAG
     Indication: PULMONARY HYPERTENSION
     Dosage: 2400 ?G, BID
     Route: 065
     Dates: end: 20180815

REACTIONS (6)
  - Cardiac failure [None]
  - Abdominal discomfort [Unknown]
  - Haemoptysis [None]
  - Diarrhoea [Unknown]
  - Haemorrhagic anaemia [None]
  - Inappropriate schedule of product administration [None]

NARRATIVE: CASE EVENT DATE: 20180713
